FAERS Safety Report 8514002 (Version 3)
Quarter: 2014Q3

REPORT INFORMATION
  Report Type: Spontaneous
  Country: IL (occurrence: IL)
  Receive Date: 20120416
  Receipt Date: 20140729
  Transmission Date: 20150326
  Serious: Yes (Other)
  Sender: FDA-Public Use
  Company Number: IL-RANBAXY-2012RR-55371

PATIENT
  Age: 58 Year
  Sex: Male

DRUGS (6)
  1. RISPERIDONE. [Suspect]
     Active Substance: RISPERIDONE
     Indication: SCHIZOPHRENIA, PARANOID TYPE
     Dosage: 6 MG/DAY
     Route: 065
  2. SERTINDOLE [Suspect]
     Active Substance: SERTINDOLE
     Indication: SCHIZOPHRENIA, PARANOID TYPE
     Dosage: 4 MG/DAY
     Route: 065
  3. SERTINDOLE [Suspect]
     Active Substance: SERTINDOLE
     Indication: SCHIZOPHRENIA, PARANOID TYPE
     Dosage: 16 MG/DAY
     Route: 065
  4. RISPERIDONE. [Suspect]
     Active Substance: RISPERIDONE
     Indication: SCHIZOPHRENIA, PARANOID TYPE
     Dosage: 3 MG/DAY
     Route: 065
  5. RISPERIDONE. [Suspect]
     Active Substance: RISPERIDONE
     Indication: SCHIZOPHRENIA, PARANOID TYPE
     Dosage: 2 MG/DAY
     Route: 065
  6. RISPERIDONE. [Suspect]
     Active Substance: RISPERIDONE
     Dosage: 5 MG/DAY
     Route: 065

REACTIONS (1)
  - Pleurothotonus [Recovered/Resolved]
